FAERS Safety Report 21950869 (Version 1)
Quarter: 2023Q1

REPORT INFORMATION
  Report Type: Spontaneous
  Country: US (occurrence: US)
  Receive Date: 20230203
  Receipt Date: 20230203
  Transmission Date: 20230418
  Serious: No
  Sender: FDA-Public Use
  Company Number: US-PFIZER INC-202300049664

PATIENT
  Age: 64 Year
  Sex: Female

DRUGS (14)
  1. PAXLOVID [Suspect]
     Active Substance: NIRMATRELVIR\RITONAVIR
     Indication: COVID-19 treatment
     Dosage: UNK
     Dates: start: 20230121, end: 20230125
  2. CELECOXIB [Concomitant]
     Active Substance: CELECOXIB
     Dosage: UNK
     Dates: start: 20220505, end: 20230110
  3. CELECOXIB [Concomitant]
     Active Substance: CELECOXIB
     Dates: start: 201001
  4. CELECOXIB [Concomitant]
     Active Substance: CELECOXIB
     Dates: start: 20220511, end: 20230121
  5. CELECOXIB [Concomitant]
     Active Substance: CELECOXIB
     Dates: start: 20220106, end: 20230121
  6. CELECOXIB [Concomitant]
     Active Substance: CELECOXIB
     Dates: start: 20150105
  7. CELECOXIB [Concomitant]
     Active Substance: CELECOXIB
     Dates: start: 20210218
  8. CELECOXIB [Concomitant]
     Active Substance: CELECOXIB
     Dates: start: 20230111
  9. ZOLPIDEM [Concomitant]
     Active Substance: ZOLPIDEM TARTRATE
     Dosage: UNK
     Dates: start: 201001
  10. EZETIMIBE\SIMVASTATIN [Concomitant]
     Active Substance: EZETIMIBE\SIMVASTATIN
     Dosage: UNK
     Dates: start: 20220511, end: 20230121
  11. ATORVASTATIN [Concomitant]
     Active Substance: ATORVASTATIN
     Dosage: UNK
     Dates: start: 20220106, end: 20230121
  12. LEVOTHYROXINE AND LIOTHYRONINE [LEVOTHYROXINE;LIOTHYRONINE] [Concomitant]
     Dosage: UNK
     Dates: start: 20150105
  13. METFORMIN [Concomitant]
     Active Substance: METFORMIN HYDROCHLORIDE
     Dosage: UNK
     Dates: start: 20210218
  14. RECLAST [Concomitant]
     Active Substance: ZOLEDRONIC ACID
     Dosage: UNK
     Route: 042
     Dates: start: 20230111

REACTIONS (3)
  - COVID-19 [Recovering/Resolving]
  - Disease recurrence [Recovering/Resolving]
  - Diarrhoea [Recovering/Resolving]

NARRATIVE: CASE EVENT DATE: 20230124
